FAERS Safety Report 4555112-9 (Version None)
Quarter: 2004Q4

REPORT INFORMATION
  Report Type: 
  Country: None (occurrence: None)
  Receive Date: 20041217
  Receipt Date: 20040805
  Transmission Date: 20050328
  Serious: No
  Sender: FDA-Public Use
  Company Number: 2004-BP-05564BP

PATIENT
  Age: 75 Year
  Sex: Female
  Weight: 72.6 kg

DRUGS (7)
  1. SPIRIVA [Suspect]
     Indication: CHRONIC OBSTRUCTIVE AIRWAYS DISEASE
     Dosage: 18 MCG (18 MCG, OD) IH
     Route: 055
     Dates: start: 20040701, end: 20040711
  2. EVISTA [Concomitant]
  3. SYNTHROID [Concomitant]
  4. BENAZEPRIL/HCTZ [Concomitant]
  5. CALCIUM GLUCONATE [Concomitant]
  6. GLUCOSAMINE [Concomitant]
  7. ARTHROTEC [Concomitant]

REACTIONS (2)
  - ARTHRALGIA [None]
  - EYE PAIN [None]
